FAERS Safety Report 15680276 (Version 1)
Quarter: 2018Q4

REPORT INFORMATION
  Report Type: Spontaneous
  Country: JP (occurrence: JP)
  Receive Date: 20181203
  Receipt Date: 20181203
  Transmission Date: 20190205
  Serious: Yes (Other)
  Sender: FDA-Public Use
  Company Number: JP-PFIZER INC-2018488997

PATIENT
  Age: 58 Year
  Sex: Female

DRUGS (4)
  1. WYPAX [Suspect]
     Active Substance: LORAZEPAM
     Dosage: UNK
  2. ABILIFY [Suspect]
     Active Substance: ARIPIPRAZOLE
     Dosage: UNK
  3. CYMBALTA [Suspect]
     Active Substance: DULOXETINE HYDROCHLORIDE
     Dosage: UNK
  4. MEILAX [Suspect]
     Active Substance: ETHYL LOFLAZEPATE
     Dosage: UNK

REACTIONS (5)
  - Syncope [Unknown]
  - Gait inability [Unknown]
  - Pulmonary hypertension [Unknown]
  - Decreased appetite [Unknown]
  - Dyspnoea exertional [Unknown]

NARRATIVE: CASE EVENT DATE: 201702
